FAERS Safety Report 16491060 (Version 1)
Quarter: 2019Q3

REPORT INFORMATION
  Report Type: Spontaneous
  Country: US (occurrence: US)
  Receive Date: 20190627
  Receipt Date: 20190627
  Transmission Date: 20191004
  Serious: Yes (Hospitalization)
  Sender: FDA-Public Use
  Company Number: None

PATIENT
  Age: 37 Year
  Sex: Female

DRUGS (2)
  1. PREDNISONE. [Concomitant]
     Active Substance: PREDNISONE
  2. SIMPONI [Suspect]
     Active Substance: GOLIMUMAB
     Indication: CROHN^S DISEASE
     Dosage: ?          OTHER FREQUENCY:Q2WKS;?
     Route: 058
     Dates: start: 20190501

REACTIONS (6)
  - Hospitalisation [None]
  - Intestinal obstruction [None]
  - Hernia repair [None]
  - Therapy cessation [None]
  - Urinary tract infection [None]
  - Nosocomial infection [None]

NARRATIVE: CASE EVENT DATE: 20190611
